FAERS Safety Report 5786087-2 (Version None)
Quarter: 2008Q2

REPORT INFORMATION
  Report Type: 
  Country: None (occurrence: None)
  Receive Date: 20080624
  Receipt Date: 20080617
  Transmission Date: 20081010
  Serious: Yes (Hospitalization)
  Sender: FDA-Public Use
  Company Number: GB-ALLERGAN-0807318US

PATIENT
  Sex: Female

DRUGS (11)
  1. PREDNISOLONE ACETATE [Suspect]
     Indication: DRUG USE FOR UNKNOWN INDICATION
     Route: 047
     Dates: start: 20050401, end: 20060601
  2. METHOTREXATE [Suspect]
     Indication: DRUG USE FOR UNKNOWN INDICATION
     Dosage: 7.5 MG, Q WEEK
     Route: 048
     Dates: start: 20050424, end: 20060701
  3. METHOTREXATE [Suspect]
     Dosage: 10 MG, Q WEEK
     Route: 048
     Dates: start: 20060701
  4. PREDNISOLONE [Suspect]
     Indication: DRUG USE FOR UNKNOWN INDICATION
     Dosage: 10 MG, UNK
     Route: 048
  5. ACYCLOVIR [Concomitant]
     Dosage: 5 MG, QD
     Dates: start: 20051101
  6. DESLORATADINE [Concomitant]
     Indication: DERMATITIS ALLERGIC
     Dosage: 2.5 ML, QD
     Dates: start: 20080401
  7. HYDROCORTISONE [Concomitant]
     Indication: DERMATITIS ALLERGIC
     Dates: start: 20080401
  8. IRON [Concomitant]
     Dosage: 5 ML, QD
     Dates: start: 20060301
  9. ACETAMINOPHEN [Concomitant]
     Dosage: 250 MG, PRN
     Dates: start: 20050201
  10. STEROID (NOS) [Concomitant]
     Dosage: 2 DF, BID
     Route: 013
     Dates: start: 20050801
  11. TRIAMCINOLONE [Concomitant]
     Dosage: 1 DF, UNK
     Dates: start: 20070201

REACTIONS (1)
  - UPPER RESPIRATORY TRACT INFECTION [None]
